FAERS Safety Report 4893550-5 (Version None)
Quarter: 2005Q4

REPORT INFORMATION
  Report Type: 
  Country: None (occurrence: None)
  Receive Date: 20051223
  Receipt Date: 20050715
  Transmission Date: 20060501
  Serious: Yes (Other)
  Sender: FDA-Public Use
  Company Number: PHEH2005US06736

PATIENT
  Age: 80 Year
  Sex: Male

DRUGS (5)
  1. CLOZARIL [Suspect]
     Indication: PSYCHOTIC DISORDER
     Dosage: 37.5 MG, QD, ORAL
     Route: 048
     Dates: start: 19970922, end: 20050613
  2. SINEMET [Concomitant]
  3. PLAVIX [Concomitant]
  4. TRIAMTERENE (TRIAMTERENE) [Concomitant]
  5. FLUDROCORTISONE ACETATE [Concomitant]

REACTIONS (2)
  - LEUKOPENIA [None]
  - NEUTROPHIL COUNT DECREASED [None]
